FAERS Safety Report 5018289-7 (Version None)
Quarter: 2006Q2

REPORT INFORMATION
  Report Type: 
  Country: None (occurrence: None)
  Receive Date: 20060530
  Receipt Date: 20060511
  Transmission Date: 20061013
  Serious: Yes (Hospitalization)
  Sender: FDA-Public Use
  Company Number: HUN/2006/0258

PATIENT
  Age: 72 Year
  Sex: Male

DRUGS (1)
  1. PIROXICAM [Suspect]
     Indication: OSTEOARTHRITIS

REACTIONS (6)
  - AGITATION [None]
  - AKATHISIA [None]
  - ANXIETY [None]
  - HYPNAGOGIC HALLUCINATION [None]
  - INSOMNIA [None]
  - TENSION [None]
